FAERS Safety Report 20513630 (Version 1)
Quarter: 2022Q1

REPORT INFORMATION
  Report Type: Spontaneous
  Country: CA (occurrence: CA)
  Receive Date: 20220224
  Receipt Date: 20220224
  Transmission Date: 20220423
  Serious: Yes (Other)
  Sender: FDA-Public Use
  Company Number: CA-LANTHEUS-LMI-2017-00611

PATIENT
  Age: 37 Year
  Sex: Male
  Weight: 86 kg

DRUGS (1)
  1. DEFINITY [Suspect]
     Active Substance: PERFLUTREN
     Indication: Echocardiogram
     Dosage: UNKNOWN DOSE (1 ML DEFINITY PREPARED IN 9 ML NORMAL SALINE)
     Route: 042
     Dates: start: 20171122, end: 20171122

REACTIONS (5)
  - Blood pressure decreased [Recovered/Resolved]
  - Pallor [Recovered/Resolved]
  - Presyncope [Recovered/Resolved]
  - Dizziness [Recovered/Resolved]
  - Hyperhidrosis [Recovered/Resolved]

NARRATIVE: CASE EVENT DATE: 20171122
